FAERS Safety Report 20791641 (Version 1)
Quarter: 2022Q2

REPORT INFORMATION
  Report Type: Report from Study
  Country: US (occurrence: US)
  Receive Date: 20220505
  Receipt Date: 20220505
  Transmission Date: 20220721
  Serious: Yes (Other)
  Sender: FDA-Public Use
  Company Number: US-UCBSA-2022024873

PATIENT
  Sex: Male

DRUGS (2)
  1. MIDAZOLAM [Suspect]
     Active Substance: MIDAZOLAM
     Indication: Seizure
     Dosage: 5 MILLIGRAM, AS NEEDED (PRN)
  2. MODERNA COVID-19 VACCINE [Suspect]
     Active Substance: ELASOMERAN
     Indication: Product used for unknown indication
     Dosage: UNK
     Dates: start: 2021

REACTIONS (4)
  - Seizure [Unknown]
  - Urticaria [Recovering/Resolving]
  - Vaccination complication [Recovering/Resolving]
  - COVID-19 immunisation [Unknown]

NARRATIVE: CASE EVENT DATE: 20210101
